FAERS Safety Report 8027941-0 (Version None)
Quarter: 2011Q4

REPORT INFORMATION
  Report Type: 
  Country: None (occurrence: None)
  Receive Date: 20111130
  Receipt Date: 20110516
  Transmission Date: 20120403
  Serious: Yes (Hospitalization, Other)
  Sender: FDA-Public Use
  Company Number: US200906005619

PATIENT
  Age: 49 Year
  Weight: 86.6 kg

DRUGS (22)
  1. GLUCOPHAGE [Concomitant]
  2. ZANTAC [Concomitant]
  3. ALENDRONATE SODIUM [Concomitant]
  4. DIPHENHYDRAMINE HCL [Concomitant]
  5. BYETTA [Suspect]
     Dosage: 5 UG, 2/D
     Dates: start: 20080701, end: 20090101
  6. HYDROCHLOROTHIAZIDE [Concomitant]
  7. CLONIDINE [Concomitant]
  8. VITAMIN D [Concomitant]
  9. EXENATIDE 5MCG PEN, DISPOSABLE DEVICE (EXENATIDE PEN (5MCG)) PEN,DISPO [Concomitant]
  10. GLIPIZIDE [Concomitant]
  11. CYMBALTA [Concomitant]
  12. DIFLUCAN [Concomitant]
  13. THEOPHYLLINE [Concomitant]
  14. INSULIN [Concomitant]
  15. LISINOPRIL [Concomitant]
  16. PRILOSEC [Concomitant]
  17. FUROSEMIDE [Concomitant]
  18. BACTRIM DS [Concomitant]
  19. ALPRAZOLAM [Concomitant]
  20. PROMETHAZINE [Concomitant]
  21. COZAAR [Concomitant]
  22. ESOMEPRAZOLE MAGNESIUM [Concomitant]

REACTIONS (5)
  - GASTRITIS [None]
  - OFF LABEL USE [None]
  - CHOLECYSTECTOMY [None]
  - RENAL INJURY [None]
  - PANCREATITIS ACUTE [None]
